FAERS Safety Report 18433624 (Version 1)
Quarter: 2020Q4

REPORT INFORMATION
  Report Type: Spontaneous
  Country: AR (occurrence: AR)
  Receive Date: 20201027
  Receipt Date: 20201027
  Transmission Date: 20210114
  Serious: Yes (Death, Hospitalization, Other)
  Sender: FDA-Public Use
  Company Number: AR-TAKEDA-2020TUS043877

PATIENT
  Sex: Male

DRUGS (2)
  1. PONATINIB [Suspect]
     Active Substance: PONATINIB
     Indication: CHRONIC MYELOID LEUKAEMIA
     Dosage: 45 MILLIGRAM
     Route: 048
     Dates: start: 20200613, end: 2020
  2. PONATINIB [Suspect]
     Active Substance: PONATINIB
     Dosage: 45 MILLIGRAM
     Route: 048
     Dates: start: 20200720, end: 2020

REACTIONS (6)
  - Gangrene [Unknown]
  - Infarction [Unknown]
  - Renal disorder [Unknown]
  - Cardiac disorder [Unknown]
  - Cardiac arrest [Fatal]
  - Liver disorder [Unknown]

NARRATIVE: CASE EVENT DATE: 20201014
